FAERS Safety Report 7506671-5 (Version None)
Quarter: 2011Q2

REPORT INFORMATION
  Report Type: 
  Country: None (occurrence: None)
  Receive Date: 20110526
  Receipt Date: 20110516
  Transmission Date: 20111010
  Serious: Yes (Other)
  Sender: FDA-Public Use
  Company Number: US-ELI_LILLY_AND_COMPANY-US201102005288

PATIENT
  Sex: Male
  Weight: 113.38 kg

DRUGS (12)
  1. PROZAC [Suspect]
     Indication: DEPRESSION
     Dosage: 20 MG, DAILY (1/D)
     Route: 048
     Dates: start: 20091102, end: 20100104
  2. FLEXERIL [Concomitant]
  3. TRAZODONE HCL [Concomitant]
     Dosage: 200 MG, OTHER
  4. KLOZAPIN [Concomitant]
     Dosage: UNK, TID
  5. TRAZODONE HCL [Concomitant]
     Dosage: 100 MG, BID
  6. MOTRIN [Concomitant]
  7. LORTAB [Concomitant]
  8. TRAMADOL HCL [Concomitant]
     Indication: PAIN
  9. EFFEXOR [Concomitant]
  10. FLOMAX [Concomitant]
  11. FORTA B [Concomitant]
  12. MICRALAX [Concomitant]

REACTIONS (18)
  - ARTHRITIS [None]
  - INFECTION [None]
  - EYE DISORDER [None]
  - HAEMORRHOIDS [None]
  - MYOCARDIAL INFARCTION [None]
  - LARGE INTESTINAL ULCER [None]
  - PARANOIA [None]
  - ARTERIOSCLEROSIS CORONARY ARTERY [None]
  - MEMORY IMPAIRMENT [None]
  - BACK PAIN [None]
  - DEPRESSION [None]
  - VISUAL IMPAIRMENT [None]
  - PAIN [None]
  - ANXIETY [None]
  - NERVOUS SYSTEM DISORDER [None]
  - ANAL FISSURE [None]
  - COLONIC POLYP [None]
  - DIVERTICULITIS [None]
